FAERS Safety Report 4894404-0 (Version None)
Quarter: 2006Q1

REPORT INFORMATION
  Report Type: 
  Country: None (occurrence: None)
  Receive Date: 20060127
  Receipt Date: 20060118
  Transmission Date: 20060701
  Serious: Yes (Death)
  Sender: FDA-Public Use
  Company Number: US-JNJFOC-20060103945

PATIENT
  Age: 60 Year
  Sex: Female

DRUGS (4)
  1. REOPRO [Suspect]
     Indication: CORONARY ARTERY OCCLUSION
     Dosage: 2 MG/ML, 5 ML
     Route: 042
  2. PLAVIX [Concomitant]
  3. HEPARIN [Concomitant]
  4. ASPIRIN [Concomitant]

REACTIONS (2)
  - DEATH [None]
  - HAEMOGLOBIN DECREASED [None]
